FAERS Safety Report 13153353 (Version 1)
Quarter: 2017Q1

REPORT INFORMATION
  Report Type: Spontaneous
  Country: US (occurrence: US)
  Receive Date: 20170125
  Receipt Date: 20170125
  Transmission Date: 20170428
  Serious: No
  Sender: FDA-Public Use
  Company Number: None

PATIENT
  Age: 31 Year
  Sex: Female
  Weight: 70.31 kg

DRUGS (1)
  1. LYRICA [Suspect]
     Active Substance: PREGABALIN
     Indication: NEUROPATHY PERIPHERAL
     Route: 048
     Dates: start: 20160901, end: 20170107

REACTIONS (4)
  - Lethargy [None]
  - Memory impairment [None]
  - Aphasia [None]
  - Disturbance in attention [None]

NARRATIVE: CASE EVENT DATE: 20170107
